FAERS Safety Report 9882447 (Version 3)
Quarter: 2014Q1

REPORT INFORMATION
  Report Type: Spontaneous
  Country: US (occurrence: US)
  Receive Date: 20140207
  Receipt Date: 20140224
  Transmission Date: 20141002
  Serious: No
  Sender: FDA-Public Use
  Company Number: US-PFIZER INC-2014032372

PATIENT
  Age: 78 Year
  Sex: Male
  Weight: 147 kg

DRUGS (5)
  1. CELEBREX [Suspect]
     Indication: ARTHRITIS
     Dosage: 200 MG, 1X/DAY
     Dates: end: 201312
  2. ATENOLOL [Concomitant]
     Dosage: UNK, 1X/DAY
  3. SIMVASTATIN [Concomitant]
     Dosage: UNK, 1X/DAY
  4. HYDROCHLOROTHIAZIDE [Concomitant]
     Indication: DIURETIC THERAPY
     Dosage: UNK, 1X/DAY
  5. WARFARIN [Concomitant]
     Dosage: UNK, 1X/DAY

REACTIONS (4)
  - Activities of daily living impaired [Unknown]
  - Movement disorder [Unknown]
  - Musculoskeletal stiffness [Unknown]
  - Pain [Unknown]
